FAERS Safety Report 13682218 (Version 1)
Quarter: 2017Q2

REPORT INFORMATION
  Report Type: Spontaneous
  Country: DE (occurrence: DE)
  Receive Date: 20170623
  Receipt Date: 20170623
  Transmission Date: 20170830
  Serious: Yes (Other)
  Sender: FDA-Public Use
  Company Number: GXKR2017DE002574

PATIENT
  Age: 81 Year
  Sex: Male

DRUGS (1)
  1. LEUPRONE HEXAL [Suspect]
     Active Substance: LEUPROLIDE ACETATE
     Indication: BENIGN PROSTATIC HYPERPLASIA
     Dosage: 5 MG, Q3MO
     Route: 065

REACTIONS (2)
  - Night sweats [Unknown]
  - Meniere^s disease [Unknown]
